FAERS Safety Report 7617498-8 (Version None)
Quarter: 2011Q3

REPORT INFORMATION
  Report Type: 
  Country: None (occurrence: None)
  Receive Date: 20110718
  Receipt Date: 20110713
  Transmission Date: 20111222
  Serious: No
  Sender: FDA-Public Use
  Company Number: US-PFIZER INC-2011159684

PATIENT
  Sex: Female

DRUGS (2)
  1. EFFEXOR XR [Suspect]
     Dosage: 75 MG, UNK
  2. EFFEXOR XR [Suspect]
     Dosage: 150 MG, UNK

REACTIONS (3)
  - HEADACHE [None]
  - FEELING ABNORMAL [None]
  - DRUG DOSE OMISSION [None]
